FAERS Safety Report 13324871 (Version 1)
Quarter: 2017Q1

REPORT INFORMATION
  Report Type: Spontaneous
  Country: US (occurrence: US)
  Receive Date: 20170310
  Receipt Date: 20170310
  Transmission Date: 20170428
  Serious: Yes (Hospitalization, Other)
  Sender: FDA-Public Use
  Company Number: US-TAKEDA-2017TUS004674

PATIENT
  Sex: Male
  Weight: 68.27 kg

DRUGS (1)
  1. ENTYVIO [Suspect]
     Active Substance: VEDOLIZUMAB
     Indication: COLITIS ULCERATIVE
     Dosage: 30 MG, UNK
     Route: 042
     Dates: start: 20170213

REACTIONS (5)
  - Weight decreased [Not Recovered/Not Resolved]
  - Fatigue [Unknown]
  - Insomnia [Unknown]
  - Clostridium difficile infection [Not Recovered/Not Resolved]
  - Muscle atrophy [Unknown]
